FAERS Safety Report 8745892 (Version 3)
Quarter: 2012Q4

REPORT INFORMATION
  Report Type: 
  Country: US (occurrence: US)
  Receive Date: 20120827
  Receipt Date: 20121025
  Transmission Date: 20130627
  Serious: Yes (Other)
  Sender: FDA-Public Use
  Company Number: US-PFIZER INC-2012205185

PATIENT
  Age: 65 Year
  Sex: Female
  Weight: 61 kg

DRUGS (11)
  1. PREMPRO [Suspect]
     Indication: HOT FLUSH
     Dosage: 0.625/2.5 mg, 1x/day
     Route: 048
     Dates: start: 1992
  2. PREMPRO [Suspect]
     Indication: MENOPAUSE
  3. LIPITOR [Concomitant]
     Indication: BLOOD CHOLESTEROL INCREASED
     Dosage: 40 mg, QD
     Route: 048
  4. NIASPAN [Concomitant]
     Indication: BLOOD CHOLESTEROL INCREASED
     Dosage: 500 mg, 1x/day
     Route: 048
  5. LANSOPRAZOLE [Concomitant]
     Dosage: UNK
  6. FLUTICASONE [Concomitant]
     Dosage: UNK
     Route: 045
  7. PREMARIN [Concomitant]
     Dosage: UNK
  8. IBUPROFEN [Concomitant]
     Dosage: UNK
  9. ASPIRIN [Concomitant]
     Dosage: UNK
  10. VAGIFEM [Concomitant]
     Indication: VULVOVAGINAL DRYNESS
     Dosage: 10 ug, 2x/week
  11. PREVACID [Concomitant]
     Indication: GASTROOESOPHAGEAL REFLUX DISEASE
     Dosage: 30 mg, 1x/day
     Route: 048

REACTIONS (2)
  - Product quality issue [Not Recovered/Not Resolved]
  - Postmenopausal haemorrhage [Not Recovered/Not Resolved]
